FAERS Safety Report 21813037 (Version 1)
Quarter: 2023Q1

REPORT INFORMATION
  Report Type: Spontaneous
  Country: US (occurrence: US)
  Receive Date: 20230103
  Receipt Date: 20230103
  Transmission Date: 20230418
  Serious: No
  Sender: FDA-Public Use
  Company Number: US-ELI_LILLY_AND_COMPANY-US202212011861

PATIENT
  Age: 35 Year
  Sex: Male

DRUGS (2)
  1. TALTZ [Suspect]
     Active Substance: IXEKIZUMAB
     Indication: Nail psoriasis
     Dosage: 80 MG, UNKNOWN
     Route: 065
     Dates: start: 2019
  2. TALTZ [Suspect]
     Active Substance: IXEKIZUMAB
     Indication: Nail psoriasis
     Dosage: 80 MG, UNKNOWN
     Route: 065
     Dates: start: 2019

REACTIONS (3)
  - Product dose omission issue [Unknown]
  - Injection site mass [Unknown]
  - Injection site discomfort [Unknown]

NARRATIVE: CASE EVENT DATE: 20221219
